FAERS Safety Report 9152178 (Version 1)
Quarter: 2013Q1

REPORT INFORMATION
  Report Type: Spontaneous
  Country: US (occurrence: US)
  Receive Date: 20130308
  Receipt Date: 20130308
  Transmission Date: 20140127
  Serious: No
  Sender: FDA-Public Use
  Company Number: US-BAYER-2013-029856

PATIENT
  Age: 90 Year
  Sex: Female
  Weight: 44.44 kg

DRUGS (7)
  1. ALEVE GELCAP [Suspect]
     Indication: ARTHRITIS
     Dosage: 1 DF, PRN
     Dates: start: 2011
  2. LISINOPRIL [Concomitant]
  3. BYSTOLIC [Concomitant]
  4. WALGREENS VITAMIN [Concomitant]
  5. VITAMIN D [Concomitant]
  6. BIOTIN [Concomitant]
  7. B12 [Concomitant]

REACTIONS (2)
  - Drug ineffective [None]
  - Incorrect drug administration duration [None]
